FAERS Safety Report 22067008 (Version 1)
Quarter: 2023Q1

REPORT INFORMATION
  Report Type: Spontaneous
  Country: US (occurrence: US)
  Receive Date: 20230306
  Receipt Date: 20230306
  Transmission Date: 20230418
  Serious: No
  Sender: FDA-Public Use
  Company Number: US-PLXPHARMA-2022-PLX-00038

PATIENT

DRUGS (2)
  1. VAZALORE [Suspect]
     Active Substance: ASPIRIN
     Indication: Product used for unknown indication
     Route: 065
  2. TREPROSTINIL [Suspect]
     Active Substance: TREPROSTINIL
     Indication: Pulmonary arterial hypertension
     Dosage: 2.5 MILLIGRAM
     Route: 048
     Dates: start: 20170517

REACTIONS (2)
  - Contusion [None]
  - Seasonal allergy [Unknown]
